FAERS Safety Report 8997426 (Version 1)
Quarter: 2013Q1

REPORT INFORMATION
  Report Type: Report from Study
  Country: DE (occurrence: DE)
  Receive Date: 20130104
  Receipt Date: 20130104
  Transmission Date: 20140127
  Serious: Yes (Death)
  Sender: FDA-Public Use
  Company Number: DE-AMGEN-DEUCT2012084391

PATIENT
  Age: 73 Year
  Sex: Female
  Weight: 120 kg

DRUGS (7)
  1. ETANERCEPT [Suspect]
     Indication: PSORIASIS
     Dosage: 50 MG, 2 TIMES/WK (INJECTION)
     Dates: start: 20090311
  2. ETANERCEPT [Suspect]
     Dosage: 50 MG, WEEK (INJECTION)
     Dates: start: 20090612, end: 20100315
  3. ETANERCEPT [Suspect]
     Dosage: 50 MG, WEEK (INJECTION)
     Dates: start: 2010
  4. ETANERCEPT [Suspect]
     Dosage: 25 MG, WEEK (INJECTION)
     Dates: start: 20120222, end: 201207
  5. SIMVAHEXAL [Concomitant]
     Indication: HYPERCHOLESTEROLAEMIA
     Dosage: UNK
  6. ZODIN                              /06312301/ [Concomitant]
     Indication: HYPERCHOLESTEROLAEMIA
     Dosage: UNK UNK, UNK
  7. EUTHYROX [Concomitant]
     Indication: HYPERTHYROIDISM
     Dosage: 100 UNK, UNK

REACTIONS (1)
  - Death [Fatal]
